FAERS Safety Report 9317288 (Version 4)
Quarter: 2013Q3

REPORT INFORMATION
  Report Type: Report from Study
  Country: US (occurrence: US)
  Receive Date: 20130530
  Receipt Date: 20130708
  Transmission Date: 20140515
  Serious: Yes (Hospitalization, Other)
  Sender: FDA-Public Use
  Company Number: US-JNJFOC-20121009973

PATIENT
  Age: 64 Year
  Sex: Male
  Weight: 117.94 kg

DRUGS (20)
  1. REMICADE [Suspect]
     Indication: CROHN^S DISEASE
     Route: 042
     Dates: start: 2005
  2. REMICADE [Suspect]
     Indication: CROHN^S DISEASE
     Route: 042
  3. REMICADE [Suspect]
     Indication: CROHN^S DISEASE
     Dosage: THE DOSE WAS CHANGED TO 10 UNITS ONCE  EVERY 6 WEEKS FREQUENCY AFTER UNKNOWN ADVERSE EVENT.
     Route: 042
     Dates: start: 2004
  4. SIMVASTATIN [Concomitant]
     Indication: HYPERLIPIDAEMIA
     Route: 048
  5. NEXIUM [Concomitant]
     Indication: GASTROOESOPHAGEAL REFLUX DISEASE
     Route: 048
     Dates: start: 2004
  6. LYRICA [Concomitant]
     Indication: PAIN
     Dosage: 50 MG 2 TABLETS IN THE MORNING AND 2 IN THE EVENING
     Route: 048
     Dates: start: 2011
  7. LYRICA [Concomitant]
     Indication: DEPRESSION
     Dosage: 50 MG 2 TABLETS IN THE MORNING AND 2 IN THE EVENING
     Route: 048
     Dates: start: 2011
  8. CYMBALTA [Concomitant]
     Indication: PAIN
     Route: 048
     Dates: start: 2011
  9. CYMBALTA [Concomitant]
     Indication: PAIN
     Route: 048
     Dates: start: 2011
  10. CYMBALTA [Concomitant]
     Indication: DEPRESSION
     Route: 048
     Dates: start: 2011
  11. CYMBALTA [Concomitant]
     Indication: DEPRESSION
     Route: 048
     Dates: start: 2011
  12. LISINOPRIL/HCTZ [Concomitant]
     Indication: HYPERTENSION
     Dosage: 20 MG/12. 5 MG
     Route: 048
  13. ONGLYZA [Concomitant]
     Indication: DIABETES MELLITUS
     Route: 048
     Dates: start: 2013
  14. METHYLPREDNISOLONE [Concomitant]
     Indication: OSTEOARTHRITIS
     Dosage: ONCE EVERY OTHER DAY
     Route: 048
     Dates: start: 2011
  15. COLCRYS [Concomitant]
     Indication: GOUT
     Dosage: 1 IN THE MORNING AND 1 IN THE EVENING
     Route: 048
     Dates: start: 2011
  16. TAMSULOSIN [Concomitant]
     Indication: PROSTATIC DISORDER
     Route: 048
  17. DILAUDID [Concomitant]
     Indication: PAIN
     Route: 048
  18. HUMALOG [Concomitant]
     Indication: DIABETES MELLITUS
     Dosage: 42 UNITS
     Route: 058
     Dates: start: 2011
  19. LEVEMIR [Concomitant]
     Indication: DIABETES MELLITUS
     Dosage: 70 UNITS AT BEDTIME
     Route: 058
     Dates: start: 2011
  20. FLOMAX [Concomitant]
     Indication: BENIGN PROSTATIC HYPERPLASIA
     Route: 065

REACTIONS (11)
  - Intervertebral disc protrusion [Recovered/Resolved]
  - Vertebral osteophyte [Recovered/Resolved]
  - Tremor [Unknown]
  - Crohn^s disease [Unknown]
  - Pneumonia [Unknown]
  - Lumbar spinal stenosis [Not Recovered/Not Resolved]
  - Oesophageal disorder [Recovering/Resolving]
  - Spinal ligament ossification [Unknown]
  - Aphasia [Recovering/Resolving]
  - Diarrhoea [Not Recovered/Not Resolved]
  - Weight increased [Unknown]
